FAERS Safety Report 5050590-3 (Version None)
Quarter: 2006Q3

REPORT INFORMATION
  Report Type: 
  Country: None (occurrence: None)
  Receive Date: 20060713
  Receipt Date: 20060704
  Transmission Date: 20061208
  Serious: Yes (Life-Threatening, Hospitalization, Disabling)
  Sender: FDA-Public Use
  Company Number: DE-GLAXOSMITHKLINE-B0430539A

PATIENT
  Sex: Female

DRUGS (10)
  1. 506U78 [Suspect]
     Indication: NON-HODGKIN'S LYMPHOMA
     Dosage: 2.7G UNKNOWN
     Route: 065
     Dates: start: 20060621, end: 20060623
  2. TAZOBAC [Concomitant]
     Indication: INFECTION
     Dosage: 4.5G THREE TIMES PER DAY
     Route: 042
     Dates: start: 20060620
  3. NEXIUM [Concomitant]
     Indication: PROPHYLAXIS
     Dosage: 20MG PER DAY
     Route: 048
     Dates: start: 20060620
  4. ALLOPURINOL [Concomitant]
     Indication: PROPHYLAXIS
     Dosage: 100MG PER DAY
     Route: 048
     Dates: start: 20060620
  5. COTRIM DS [Concomitant]
     Indication: PROPHYLAXIS
     Dosage: 960MG TWICE PER DAY
     Route: 048
     Dates: start: 20060602
  6. TRAMADOL HCL [Concomitant]
     Indication: PAIN
     Dosage: 50MG FOUR TIMES PER DAY
     Route: 048
     Dates: start: 20060620
  7. DICLOFENAC [Concomitant]
     Indication: PAIN
     Dosage: 25MG THREE TIMES PER DAY
     Route: 048
  8. BLEMAREN [Concomitant]
     Indication: PROPHYLAXIS
     Route: 048
  9. FENISTIL [Concomitant]
     Indication: PROPHYLAXIS
     Dosage: 4MG THREE TIMES PER DAY
     Route: 048
     Dates: start: 20060620
  10. AMPHOMORONAL [Concomitant]
     Indication: PROPHYLAXIS
     Dosage: 400MG FOUR TIMES PER DAY
     Route: 048
     Dates: start: 20060620

REACTIONS (7)
  - ATTENTION DEFICIT/HYPERACTIVITY DISORDER [None]
  - GUILLAIN-BARRE SYNDROME [None]
  - HALLUCINATION [None]
  - HEPATOTOXICITY [None]
  - NEUROTOXICITY [None]
  - PARALYSIS [None]
  - SOMNOLENCE [None]
